FAERS Safety Report 7724599-2 (Version None)
Quarter: 2011Q3

REPORT INFORMATION
  Report Type: 
  Country: None (occurrence: None)
  Receive Date: 20110901
  Receipt Date: 20110825
  Transmission Date: 20111222
  Serious: No
  Sender: FDA-Public Use
  Company Number: US-B.I. PHARMACEUTICALS,INC./RIDGEFIELD-2011-BP-17095BP

PATIENT
  Age: 59 Year
  Sex: Female

DRUGS (7)
  1. ZYRTEC [Concomitant]
     Indication: HYPERSENSITIVITY
  2. SPIRIVA [Suspect]
     Indication: ASTHMA
     Dosage: 18 MCG
     Route: 055
     Dates: start: 20090101
  3. SYNTHROID [Concomitant]
     Indication: THYROID DISORDER
  4. NEXIUM [Concomitant]
     Indication: GASTROOESOPHAGEAL REFLUX DISEASE
  5. SINGULAIR [Concomitant]
     Indication: ASTHMA
  6. CELEBREX [Concomitant]
     Indication: OSTEOARTHRITIS
  7. NORVASC [Concomitant]
     Indication: HYPERTENSION
     Dates: start: 20110101

REACTIONS (3)
  - COUGH [None]
  - FATIGUE [None]
  - DYSPNOEA [None]
